FAERS Safety Report 4338221-9 (Version None)
Quarter: 2004Q2

REPORT INFORMATION
  Report Type: 
  Country: None (occurrence: None)
  Receive Date: 20040409
  Receipt Date: 20040325
  Transmission Date: 20050107
  Serious: No
  Sender: FDA-Public Use
  Company Number: 2004SE01487

PATIENT
  Age: 60 Year
  Sex: Male

DRUGS (3)
  1. SELOKEEN [Suspect]
     Indication: MYOCARDIAL INFARCTION
     Dates: start: 20011201
  2. CRESTOR [Suspect]
     Indication: MYOCARDIAL INFARCTION
  3. ASPIRIN [Suspect]
     Indication: MYOCARDIAL INFARCTION
     Dosage: 100 DAILY
     Dates: start: 20011201

REACTIONS (1)
  - IDIOPATHIC THROMBOCYTOPENIC PURPURA [None]
